FAERS Safety Report 16101761 (Version 2)
Quarter: 2019Q2

REPORT INFORMATION
  Report Type: Spontaneous
  Country: US (occurrence: US)
  Receive Date: 20190321
  Receipt Date: 20190520
  Transmission Date: 20190711
  Serious: Yes (Hospitalization)
  Sender: FDA-Public Use
  Company Number: US-JNJFOC-20190324947

PATIENT
  Age: 50 Year
  Sex: Male

DRUGS (1)
  1. INVOKANA [Suspect]
     Active Substance: CANAGLIFLOZIN
     Indication: PRODUCT USED FOR UNKNOWN INDICATION
     Route: 048

REACTIONS (6)
  - Diabetic foot infection [Unknown]
  - Toe amputation [Unknown]
  - Diabetic gangrene [Unknown]
  - Pathological fracture [Unknown]
  - Osteomyelitis [Unknown]
  - Cellulitis [Unknown]

NARRATIVE: CASE EVENT DATE: 201803
